FAERS Safety Report 5884187-X (Version None)
Quarter: 2008Q3

REPORT INFORMATION
  Report Type: 
  Country: None (occurrence: None)
  Receive Date: 20080915
  Receipt Date: 20080910
  Transmission Date: 20090109
  Serious: Yes (Hospitalization)
  Sender: FDA-Public Use
  Company Number: JP-ASTRAZENECA-2008AP07155

PATIENT
  Age: 76 Year
  Sex: Female

DRUGS (1)
  1. TENORMIN [Suspect]
     Dosage: DOSE UNKNOWN
     Route: 048
     Dates: start: 20071113

REACTIONS (1)
  - ARTERIOSCLEROSIS OBLITERANS [None]
